FAERS Safety Report 4690314-2 (Version None)
Quarter: 2005Q2

REPORT INFORMATION
  Report Type: 
  Country: None (occurrence: None)
  Receive Date: 20050613
  Receipt Date: 20050606
  Transmission Date: 20051028
  Serious: Yes (Life-Threatening)
  Sender: FDA-Public Use
  Company Number: 2005BH000133

PATIENT
  Age: 36 Year
  Sex: Female
  Weight: 85.9 kg

DRUGS (2)
  1. ATIVAN [Suspect]
     Indication: INSOMNIA
     Dosage: 2 MG;AS NEEDED, PO
     Route: 048
     Dates: start: 20050412
  2. COGENTIN [Concomitant]

REACTIONS (1)
  - OVERDOSE [None]
